FAERS Safety Report 10912825 (Version 1)
Quarter: 2015Q1

REPORT INFORMATION
  Report Type: Spontaneous
  Country: US (occurrence: US)
  Receive Date: 20150313
  Receipt Date: 20150313
  Transmission Date: 20150721
  Serious: No
  Sender: FDA-Public Use
  Company Number: US-TEVA-546615USA

PATIENT
  Age: 54 Year
  Sex: Female
  Weight: 57.66 kg

DRUGS (9)
  1. ROXICODONE [Concomitant]
     Active Substance: OXYCODONE HYDROCHLORIDE
  2. ACTIQ [Suspect]
     Active Substance: FENTANYL CITRATE
     Indication: BREAKTHROUGH PAIN
     Dosage: 1 SUCKER AS NEEDED
     Dates: start: 2003
  3. KLONOPIN [Concomitant]
     Active Substance: CLONAZEPAM
  4. LIDODERM [Concomitant]
     Active Substance: LIDOCAINE
  5. VALIUM [Concomitant]
     Active Substance: DIAZEPAM
  6. LYRICA [Suspect]
     Active Substance: PREGABALIN
     Indication: NEURALGIA
     Dosage: 150 MILLIGRAM DAILY;
     Route: 048
  7. SOMA [Concomitant]
     Active Substance: CARISOPRODOL
  8. DUROGESIC [Concomitant]
     Active Substance: FENTANYL
  9. LYRICA [Suspect]
     Active Substance: PREGABALIN
     Indication: PAIN IN EXTREMITY

REACTIONS (3)
  - Tooth erosion [Not Recovered/Not Resolved]
  - Salivary gland mass [Recovering/Resolving]
  - Body height decreased [Unknown]

NARRATIVE: CASE EVENT DATE: 201407
